FAERS Safety Report 9982157 (Version 1)
Quarter: 2014Q1

REPORT INFORMATION
  Report Type: Report from Study
  Country: US (occurrence: US)
  Receive Date: 20140307
  Receipt Date: 20140307
  Transmission Date: 20141002
  Serious: No
  Sender: FDA-Public Use
  Company Number: US-ABBVIE-13P-163-1179103-00

PATIENT
  Age: 20 Year
  Sex: Male

DRUGS (4)
  1. HUMIRA [Suspect]
     Indication: CROHN^S DISEASE
     Dates: start: 20121010
  2. ZYRTEC [Concomitant]
     Indication: ASTHMA
  3. SULFAMETHOXAZOLE AND TRIMETHOPRIM [Concomitant]
     Indication: STAPHYLOCOCCAL INFECTION
  4. MONTELUKAST SODIUM [Concomitant]
     Indication: ASTHMA

REACTIONS (1)
  - Drug dose omission [Not Recovered/Not Resolved]
